FAERS Safety Report 6714140-5 (Version None)
Quarter: 2010Q2

REPORT INFORMATION
  Report Type: 
  Country: None (occurrence: None)
  Receive Date: 20100503
  Receipt Date: 20100416
  Transmission Date: 20101027
  Serious: Yes (Death, Hospitalization)
  Sender: FDA-Public Use
  Company Number: 2010001514

PATIENT
  Sex: Male

DRUGS (11)
  1. TARCEVA [Suspect]
     Indication: NON-SMALL CELL LUNG CANCER
     Dosage: 100 MG; ORAL
     Route: 048
     Dates: start: 20091001, end: 20100307
  2. RELISTOR [Suspect]
     Indication: CONSTIPATION
     Dosage: 1 DOSAGE FORMS), SUBCUTANEOUS
     Route: 058
  3. DEXAMETHASONE SODIUM POSPHATE [Concomitant]
  4. PANTOPRAZOLE SODIUM [Concomitant]
  5. IBUHEXAL (IBUPROFEN) [Concomitant]
  6. BISOPROLOL FUMARATE [Concomitant]
  7. CARVEDILOL [Concomitant]
  8. LEVOTHYROXINE SODIUM [Concomitant]
  9. ENALAPRIL MALEATE [Concomitant]
  10. NITRENDIPINE (NITRENDIPINE) [Concomitant]
  11. INNOHEP [Concomitant]

REACTIONS (6)
  - BLISTER [None]
  - CYANOSIS [None]
  - OEDEMA PERIPHERAL [None]
  - PAIN IN EXTREMITY [None]
  - PLEURAL EFFUSION [None]
  - VASCULAR OCCLUSION [None]
